FAERS Safety Report 19518891 (Version 2)
Quarter: 2024Q2

REPORT INFORMATION
  Report Type: Other
  Country: SE (occurrence: SE)
  Receive Date: 20210712
  Receipt Date: 20240416
  Transmission Date: 20240715
  Serious: Yes (Other)
  Sender: FDA-Public Use
  Company Number: SE-ADIENNEP-2020AD000595

PATIENT
  Age: 188 Month
  Sex: Female

DRUGS (14)
  1. RITUXIMAB [Suspect]
     Active Substance: RITUXIMAB
     Indication: B precursor type acute leukaemia
     Route: 041
  2. RITUXIMAB [Suspect]
     Active Substance: RITUXIMAB
     Indication: Prophylaxis against transplant rejection
  3. MYCOPHENOLATE MOFETIL [Suspect]
     Active Substance: MYCOPHENOLATE MOFETIL
     Indication: B precursor type acute leukaemia
     Route: 065
  4. MYCOPHENOLATE MOFETIL [Suspect]
     Active Substance: MYCOPHENOLATE MOFETIL
     Indication: Prophylaxis against graft versus host disease
  5. CLOFARABINE [Suspect]
     Active Substance: CLOFARABINE
     Indication: B precursor type acute leukaemia
     Route: 065
  6. CLOFARABINE [Suspect]
     Active Substance: CLOFARABINE
     Indication: Prophylaxis against transplant rejection
  7. THIOTEPA [Suspect]
     Active Substance: THIOTEPA
     Indication: B precursor type acute leukaemia
     Route: 065
  8. THIOTEPA [Suspect]
     Active Substance: THIOTEPA
     Indication: Prophylaxis against transplant rejection
  9. THYMOCYTE IMMUNE GLOBULIN NOS [Suspect]
     Active Substance: THYMOCYTE IMMUNE GLOBULIN NOS
     Indication: Prophylaxis against transplant rejection
     Route: 065
  10. MELPHALAN [Suspect]
     Active Substance: MELPHALAN
     Indication: B precursor type acute leukaemia
     Route: 065
  11. MELPHALAN [Suspect]
     Active Substance: MELPHALAN
     Indication: Prophylaxis against transplant rejection
  12. CYCLOPHOSPHAMIDE [Suspect]
     Active Substance: CYCLOPHOSPHAMIDE
     Indication: B precursor type acute leukaemia
     Route: 065
  13. ETOPOSIDE [Suspect]
     Active Substance: ETOPOSIDE
     Indication: B precursor type acute leukaemia
     Route: 065
  14. DEXAMETHASONE [Concomitant]
     Active Substance: DEXAMETHASONE
     Indication: Prophylaxis of nausea and vomiting

REACTIONS (6)
  - Viral infection [Unknown]
  - Acute graft versus host disease in skin [Unknown]
  - Thrombocytopenia [Unknown]
  - Neutropenia [Unknown]
  - Pyrexia [Unknown]
  - Pancytopenia [Unknown]
